FAERS Safety Report 13064894 (Version 2)
Quarter: 2017Q2

REPORT INFORMATION
  Report Type: Spontaneous
  Country: JP (occurrence: JP)
  Receive Date: 20161227
  Receipt Date: 20170622
  Transmission Date: 20170830
  Serious: Yes (Other)
  Sender: FDA-Public Use
  Company Number: JP-JNJFOC-20161221986

PATIENT
  Age: 65 Year
  Sex: Male

DRUGS (3)
  1. DUROTEP MT [Suspect]
     Active Substance: FENTANYL
     Indication: CANCER PAIN
     Dosage: 2 PATCHES OF FENTANYL (MATRIX PATCH) 100 ??MCG/HR FOR 3 DAYS AND 1 PATCH OF 50 MCG/HR FOR 3 DAYS
     Route: 062
  2. DUROTEP MT [Suspect]
     Active Substance: FENTANYL
     Indication: CANCER PAIN
     Route: 062
  3. FOSFLUCONAZOLE [Interacting]
     Active Substance: FOSFLUCONAZOLE
     Indication: INFECTION
     Route: 065

REACTIONS (3)
  - Drug interaction [Unknown]
  - Infection [Unknown]
  - Delirium [Recovered/Resolved]
